FAERS Safety Report 17025305 (Version 4)
Quarter: 2020Q2

REPORT INFORMATION
  Report Type: Report from Study
  Country: JP (occurrence: JP)
  Receive Date: 20191113
  Receipt Date: 20200408
  Transmission Date: 20200713
  Serious: No
  Sender: FDA-Public Use
  Company Number: JP-GLAXOSMITHKLINE-JP2019JPN204133

PATIENT
  Age: 6 Decade
  Sex: Male
  Weight: 70 kg

DRUGS (14)
  1. METHYCOBAL [Concomitant]
     Active Substance: METHYLCOBALAMIN
     Indication: EOSINOPHILIC GRANULOMATOSIS WITH POLYANGIITIS
     Dosage: UNK
  2. MEPOLIZUMAB [Suspect]
     Active Substance: MEPOLIZUMAB
     Indication: EOSINOPHILIC GRANULOMATOSIS WITH POLYANGIITIS
     Dosage: 300 MG, QD
     Route: 058
     Dates: start: 20190515, end: 20190515
  3. MEPOLIZUMAB [Suspect]
     Active Substance: MEPOLIZUMAB
     Dosage: 300 MG, QD
     Route: 058
     Dates: start: 20190807, end: 20190807
  4. PREDNISOLONE. [Concomitant]
     Active Substance: PREDNISOLONE
     Indication: EOSINOPHILIC GRANULOMATOSIS WITH POLYANGIITIS
     Dosage: 2 MG, 1D
     Dates: end: 20190806
  5. ZETIA [Concomitant]
     Active Substance: EZETIMIBE
     Dosage: UNK
  6. NEXIUM [Concomitant]
     Active Substance: ESOMEPRAZOLE MAGNESIUM
     Indication: PROPHYLAXIS AGAINST GASTROINTESTINAL ULCER
     Dosage: UNK
  7. DENOTAS CHEWABLE COMBINATION TABLETS [Concomitant]
     Active Substance: CALCIUM CARBONATE\CHOLECALCIFEROL\MAGNESIUM CARBONATE
     Indication: PROPHYLAXIS
     Dosage: UNK
  8. RELVAR [Concomitant]
     Active Substance: FLUTICASONE FUROATE\VILANTEROL TRIFENATATE
     Indication: EOSINOPHILIC GRANULOMATOSIS WITH POLYANGIITIS
     Dosage: 100 ?G, 1D
  9. METOLATE [Concomitant]
     Active Substance: METHOTREXATE
     Indication: EOSINOPHILIC GRANULOMATOSIS WITH POLYANGIITIS
     Dosage: 6 MG/WEEK
  10. PRALIA [Concomitant]
     Active Substance: DENOSUMAB
     Indication: OSTEOPOROSIS PROPHYLAXIS
     Dosage: UNK
  11. LYRICA [Concomitant]
     Active Substance: PREGABALIN
     Indication: EOSINOPHILIC GRANULOMATOSIS WITH POLYANGIITIS
     Dosage: UNK
  12. MEPOLIZUMAB [Suspect]
     Active Substance: MEPOLIZUMAB
     Dosage: 300 MG, QD
     Route: 058
     Dates: start: 20190612, end: 20190612
  13. MEPOLIZUMAB [Suspect]
     Active Substance: MEPOLIZUMAB
     Dosage: 300 MG, QD
     Route: 058
     Dates: start: 20190710, end: 20190710
  14. FOLIAMIN [Concomitant]
     Active Substance: FOLIC ACID
     Indication: PROPHYLAXIS
     Dosage: UNK

REACTIONS (1)
  - Eczema asteatotic [Recovering/Resolving]

NARRATIVE: CASE EVENT DATE: 20190807
